FAERS Safety Report 6541466-0 (Version None)
Quarter: 2010Q1

REPORT INFORMATION
  Report Type: 
  Country: None (occurrence: None)
  Receive Date: 20100118
  Receipt Date: 20100105
  Transmission Date: 20100710
  Serious: Yes (Hospitalization, Disabling, Other)
  Sender: FDA-Public Use
  Company Number: NL-ABBOTT-09P-114-0578326-00

PATIENT
  Sex: Female
  Weight: 75 kg

DRUGS (2)
  1. HUMIRA [Suspect]
     Indication: CROHN'S DISEASE
     Route: 058
     Dates: start: 20090115, end: 20090504
  2. QUESTRAN [Concomitant]
     Indication: DIARRHOEA
     Dates: start: 20071213

REACTIONS (5)
  - DYSURIA [None]
  - GAIT DISTURBANCE [None]
  - HYPOAESTHESIA [None]
  - PAIN OF SKIN [None]
  - URINARY RETENTION [None]
